FAERS Safety Report 7906398-1 (Version None)
Quarter: 2011Q4

REPORT INFORMATION
  Report Type: 
  Country: None (occurrence: None)
  Receive Date: 20111110
  Receipt Date: 20111103
  Transmission Date: 20120403
  Serious: Yes (Other)
  Sender: FDA-Public Use
  Company Number: DE-PFIZER INC-2011269200

PATIENT
  Age: 81 Year
  Sex: Female

DRUGS (2)
  1. ALENDRONSAEURE [Suspect]
     Dosage: UNK
  2. LYRICA [Suspect]
     Dosage: 150 MG, UNK

REACTIONS (4)
  - ORAL DISORDER [None]
  - DYSPHAGIA [None]
  - DRUG ADMINISTRATION ERROR [None]
  - WRONG TECHNIQUE IN DRUG USAGE PROCESS [None]
